FAERS Safety Report 13201479 (Version 1)
Quarter: 2017Q1

REPORT INFORMATION
  Report Type: Spontaneous
  Country: US (occurrence: US)
  Receive Date: 20170208
  Receipt Date: 20170208
  Transmission Date: 20170428
  Serious: No
  Sender: FDA-Public Use
  Company Number: US-AMGEN-USASP2016069102

PATIENT

DRUGS (6)
  1. PARAPLATIN [Concomitant]
     Active Substance: CARBOPLATIN
     Dosage: UNK
  2. CYTOXAN [Concomitant]
     Active Substance: CYCLOPHOSPHAMIDE
     Dosage: UNK
  3. DEXAMETHASONE. [Concomitant]
     Active Substance: DEXAMETHASONE
     Dosage: UNK
  4. NEULASTA [Suspect]
     Active Substance: PEGFILGRASTIM
     Indication: PRODUCT USED FOR UNKNOWN INDICATION
     Dosage: UNK
     Route: 065
  5. ADRIAMYCIN [Concomitant]
     Active Substance: DOXORUBICIN HYDROCHLORIDE
     Dosage: UNK
  6. TAXOTERE [Concomitant]
     Active Substance: DOCETAXEL
     Dosage: UNK

REACTIONS (6)
  - Tongue disorder [Unknown]
  - Anaemia [Unknown]
  - Pain [Unknown]
  - Weight decreased [Unknown]
  - Fear of eating [Unknown]
  - Decreased appetite [Unknown]
